FAERS Safety Report 16259298 (Version 74)
Quarter: 2024Q3

REPORT INFORMATION
  Report Type: Spontaneous
  Country: CA (occurrence: CA)
  Receive Date: 20190501
  Receipt Date: 20240927
  Transmission Date: 20241016
  Serious: Yes (Hospitalization, Other)
  Sender: CELLTRION
  Company Number: CA-CELLTRION INC.-2019CA020672

PATIENT

DRUGS (214)
  1. INFLECTRA [Suspect]
     Active Substance: INFLIXIMAB-DYYB
     Indication: Crohn^s disease
     Dosage: 5 MG/KG, EVERY 6 WEEKS
     Route: 042
     Dates: start: 201801
  2. INFLECTRA [Suspect]
     Active Substance: INFLIXIMAB-DYYB
     Dosage: 5 MG/KG, EVERY 6 WEEKS
     Route: 042
     Dates: start: 20190328
  3. INFLECTRA [Suspect]
     Active Substance: INFLIXIMAB-DYYB
     Dosage: 5 MG/KG, EVERY 6 WEEKS
     Route: 042
     Dates: start: 20190620
  4. INFLECTRA [Suspect]
     Active Substance: INFLIXIMAB-DYYB
     Dosage: 5 MG/KG, EVERY 6 WEEKS
     Route: 042
     Dates: start: 20191024
  5. INFLECTRA [Suspect]
     Active Substance: INFLIXIMAB-DYYB
     Dosage: 5 MG/KG, EVERY 6 WEEKS
     Route: 042
     Dates: start: 20191205
  6. INFLECTRA [Suspect]
     Active Substance: INFLIXIMAB-DYYB
     Dosage: 5 MG/KG, EVERY 6 WEEKS
     Route: 042
     Dates: start: 20200116
  7. INFLECTRA [Suspect]
     Active Substance: INFLIXIMAB-DYYB
     Dosage: 10 MG/KG, EVERY 6 WEEKS
     Route: 042
     Dates: start: 20200227
  8. INFLECTRA [Suspect]
     Active Substance: INFLIXIMAB-DYYB
     Dosage: 10 MG/KG, EVERY 6 WEEKS
     Route: 042
     Dates: start: 20200604, end: 20201013
  9. PANTOPRAZOLE [Suspect]
     Active Substance: PANTOPRAZOLE
     Dosage: UNK
     Route: 065
  10. PANTOPRAZOLE [Suspect]
     Active Substance: PANTOPRAZOLE
     Dosage: 40 MILLIGRAM, QD
     Route: 065
  11. ATORVASTATIN CALCIUM [Suspect]
     Active Substance: ATORVASTATIN CALCIUM
     Dosage: UNK
     Route: 065
  12. ATORVASTATIN CALCIUM [Suspect]
     Active Substance: ATORVASTATIN CALCIUM
     Dosage: UNK
     Route: 048
  13. ALPRAZOLAM [Suspect]
     Active Substance: ALPRAZOLAM
     Dosage: 0.25 MILLIGRAM
     Route: 065
  14. DIFLUCAN [Suspect]
     Active Substance: FLUCONAZOLE
     Dosage: UNK
  15. SOLU-MEDROL [Suspect]
     Active Substance: METHYLPREDNISOLONE SODIUM SUCCINATE
     Dosage: UNK
     Route: 042
  16. METHYLPREDNISOLONE SODIUM SUCCINATE [Suspect]
     Active Substance: METHYLPREDNISOLONE SODIUM SUCCINATE
     Dosage: UNK
     Route: 042
  17. MIDAZOLAM [Suspect]
     Active Substance: MIDAZOLAM
     Dosage: 2 DF
  18. MIDAZOLAM [Suspect]
     Active Substance: MIDAZOLAM
     Dosage: 2 DF (PRE-FILLED SYRINGE)
  19. PREGABALIN [Suspect]
     Active Substance: PREGABALIN
     Dosage: UNK
     Route: 065
  20. PREGABALIN [Suspect]
     Active Substance: PREGABALIN
     Dosage: 150 MG
     Route: 065
  21. AZITHROMYCIN [Suspect]
     Active Substance: AZITHROMYCIN
     Dosage: UNK
     Route: 065
  22. LOMOTIL [Suspect]
     Active Substance: ATROPINE SULFATE\DIPHENOXYLATE HYDROCHLORIDE
     Dosage: UNK UNK, QID
     Route: 048
  23. LOMOTIL [Suspect]
     Active Substance: ATROPINE SULFATE\DIPHENOXYLATE HYDROCHLORIDE
     Dosage: 4 DF, 1X/DAY, QD
     Route: 048
  24. LOMOTIL [Suspect]
     Active Substance: ATROPINE SULFATE\DIPHENOXYLATE HYDROCHLORIDE
     Dosage: UNK
     Route: 065
  25. NITROGLYCERIN [Suspect]
     Active Substance: NITROGLYCERIN
     Dosage: UNK
     Route: 048
  26. CALCIUM\CHOLECALCIFEROL [Suspect]
     Active Substance: CALCIUM\CHOLECALCIFEROL
     Dosage: UNK
     Route: 065
  27. BACTERIOSTATIC SODIUM CHLORIDE [Suspect]
     Active Substance: SODIUM CHLORIDE
     Dosage: UNK
     Route: 065
  28. POTASSIUM CHLORIDE [Suspect]
     Active Substance: POTASSIUM CHLORIDE
     Dosage: UNK
     Route: 065
  29. POTASSIUM CHLORIDE [Suspect]
     Active Substance: POTASSIUM CHLORIDE
     Dosage: UNK
  30. ADALIMUMAB [Suspect]
     Active Substance: ADALIMUMAB
     Indication: Crohn^s disease
     Dosage: UNK SOLUTION (EXCEPT SYRUP)
     Route: 058
  31. SODIUM BICARBONATE [Suspect]
     Active Substance: SODIUM BICARBONATE
     Dosage: UNK
     Route: 065
  32. NEOMYCIN SULFATE [Suspect]
     Active Substance: NEOMYCIN SULFATE
     Dosage: UNK
     Route: 065
  33. FLUCONAZOLE [Suspect]
     Active Substance: FLUCONAZOLE
     Route: 065
  34. SERTRALINE HYDROCHLORIDE [Suspect]
     Active Substance: SERTRALINE HYDROCHLORIDE
     Dosage: 25 MILLIGRAM, QD
     Route: 065
  35. CALCIUM CARBONATE\CHOLECALCIFEROL\ZINC [Suspect]
     Active Substance: CALCIUM CARBONATE\CHOLECALCIFEROL\ZINC
     Dosage: UNKNOWN
     Route: 014
  36. ACETAMINOPHEN\CODEINE PHOSPHATE [Suspect]
     Active Substance: ACETAMINOPHEN\CODEINE PHOSPHATE
     Dosage: UNK
  37. HYDROCORTISONE [Suspect]
     Active Substance: HYDROCORTISONE\HYDROCORTISONE ACETATE
     Dosage: UNK
     Route: 065
  38. BACTRIM [Suspect]
     Active Substance: SULFAMETHOXAZOLE\TRIMETHOPRIM
     Dosage: UNK
     Route: 065
  39. BACTRIM [Suspect]
     Active Substance: SULFAMETHOXAZOLE\TRIMETHOPRIM
     Dosage: UNK
     Route: 045
  40. AMOXICILLIN TRIHYDRATE [Suspect]
     Active Substance: AMOXICILLIN
     Dosage: UNK
     Route: 065
  41. PENTASA [Suspect]
     Active Substance: MESALAMINE
     Indication: Crohn^s disease
     Dosage: UNK
     Route: 065
  42. PENTASA [Suspect]
     Active Substance: MESALAMINE
     Dosage: UNK
     Route: 065
  43. PENTASA [Suspect]
     Active Substance: MESALAMINE
     Dosage: UNK
     Route: 065
  44. ACETAMINOPHEN\PROPOXYPHENE HYDROCHLORIDE [Suspect]
     Active Substance: ACETAMINOPHEN\PROPOXYPHENE HYDROCHLORIDE
     Dosage: UNK
     Route: 048
  45. FLUTICASONE FUROATE [Suspect]
     Active Substance: FLUTICASONE FUROATE
     Dosage: UNK (SPRAY, METERED)
     Route: 065
  46. BETAMETHASONE VALERATE [Suspect]
     Active Substance: BETAMETHASONE VALERATE
     Dosage: UNK
     Route: 065
  47. BETAMETHASONE VALERATE [Suspect]
     Active Substance: BETAMETHASONE VALERATE
     Dosage: 0.122 GRAM
     Route: 065
  48. BIAXIN [Suspect]
     Active Substance: CLARITHROMYCIN
     Dosage: UNK (TABLET, EXTENDED RELEASE)
     Route: 065
  49. CLOTRIMAZOLE [Suspect]
     Active Substance: CLOTRIMAZOLE
     Dosage: UNK
     Route: 065
  50. CUPRIC OXIDE [Suspect]
     Active Substance: CUPRIC OXIDE
     Dosage: UNK
     Route: 065
  51. .ALPHA.-TOCOPHEROL, D- [Suspect]
     Active Substance: .ALPHA.-TOCOPHEROL, D-
     Dosage: UNK
     Route: 065
  52. DILAUDID [Suspect]
     Active Substance: HYDROMORPHONE HYDROCHLORIDE
     Dosage: UNK
     Route: 065
  53. DILAUDID [Suspect]
     Active Substance: HYDROMORPHONE HYDROCHLORIDE
     Dosage: 1 DOSAGE FORM, BID
     Route: 065
  54. DIPHENHYDRAMINE HYDROCHLORIDE [Suspect]
     Active Substance: DIPHENHYDRAMINE HYDROCHLORIDE
     Dosage: 4 DOSAGE FORM, QD (4 EVERY 1 DAYS)
     Route: 065
  55. ENTOCORT [Suspect]
     Active Substance: BUDESONIDE
     Dosage: UNK, EXTENDED
     Route: 065
  56. ENTOCORT [Suspect]
     Active Substance: BUDESONIDE
     Dosage: 1 DF
     Route: 048
  57. ERTAPENEM SODIUM [Suspect]
     Active Substance: ERTAPENEM SODIUM
     Dosage: UNK
     Route: 065
  58. NADOLOL [Suspect]
     Active Substance: NADOLOL
     Dosage: UNK
     Route: 065
  59. NADOLOL [Suspect]
     Active Substance: NADOLOL
     Dosage: 40 MILLIGRAM
     Route: 065
  60. HUMIRA [Suspect]
     Active Substance: ADALIMUMAB
     Indication: Crohn^s disease
     Dosage: UNK SOLUTION (EXCEPT SYRUP)
     Route: 058
  61. HUMIRA [Suspect]
     Active Substance: ADALIMUMAB
     Dosage: UNK SOLUTION (EXCEPT SYRUP)
     Route: 065
  62. POLYETHYLENE GLYCOL\POTASSIUM CHLORIDE\SODIUM BICARBONATE [Suspect]
     Active Substance: POLYETHYLENE GLYCOL\POTASSIUM CHLORIDE\SODIUM BICARBONATE
     Dosage: UNK
     Route: 065
  63. MAGNESIUM SULFATE [Suspect]
     Active Substance: MAGNESIUM SULFATE
     Dosage: UNK
     Route: 065
  64. MAGNESIUM SULFATE [Suspect]
     Active Substance: MAGNESIUM SULFATE
     Dosage: UNK
     Route: 030
  65. NICODERM CQ [Suspect]
     Active Substance: NICOTINE
     Dosage: UNK
     Route: 062
  66. NICODERM CQ [Suspect]
     Active Substance: NICOTINE
     Dosage: UNK
     Route: 062
  67. PREDNISONE [Suspect]
     Active Substance: PREDNISONE
     Dosage: UNK
     Route: 065
  68. REFRESH TEARS [Suspect]
     Active Substance: CARBOXYMETHYLCELLULOSE SODIUM
     Dosage: UNK
     Route: 031
  69. REFRESH TEARS [Suspect]
     Active Substance: CARBOXYMETHYLCELLULOSE SODIUM
     Dosage: UNK
     Route: 047
  70. REFRESH TEARS [Suspect]
     Active Substance: CARBOXYMETHYLCELLULOSE SODIUM
     Dosage: UNK
     Route: 065
  71. XANTOFYL PALMITATE [Suspect]
     Active Substance: XANTOFYL PALMITATE
     Dosage: UNK
     Route: 065
  72. XANTOFYL PALMITATE [Suspect]
     Active Substance: XANTOFYL PALMITATE
     Dosage: UNK
     Route: 065
  73. ZINC OXIDE [Suspect]
     Active Substance: ZINC OXIDE
     Dosage: UNK
     Route: 065
  74. .ALPHA.-TOCOPHEROL [Suspect]
     Active Substance: .ALPHA.-TOCOPHEROL
     Dosage: UNK
     Route: 016
  75. ASPIRIN [Suspect]
     Active Substance: ASPIRIN
     Dosage: UNK
     Route: 048
  76. GLYCERIN [Suspect]
     Active Substance: GLYCERIN
     Dosage: UNK
     Route: 048
  77. POLYETHYLENE GLYCOL 3350\POTASSIUM CHLORIDE\SODIUM BICARBONATE\SODIUM [Suspect]
     Active Substance: POLYETHYLENE GLYCOL 3350\POTASSIUM CHLORIDE\SODIUM BICARBONATE\SODIUM CHLORIDE\SODIUM SULFATE
     Dosage: UNK
     Route: 066
  78. DIFENOXIN HYDROCHLORIDE [Suspect]
     Active Substance: DIFENOXIN HYDROCHLORIDE
     Dosage: UNK
     Route: 065
  79. ISONIAZID\PYRIDOXINE\SULFAMETHOXAZOLE\TRIMETHOPRIM [Suspect]
     Active Substance: ISONIAZID\PYRIDOXINE\SULFAMETHOXAZOLE\TRIMETHOPRIM
     Dosage: UNK
     Route: 065
  80. GRAMICIDIN\NEOMYCIN\POLYMYXIN B SULFATE [Suspect]
     Active Substance: GRAMICIDIN\NEOMYCIN\POLYMYXIN B SULFATE
     Dosage: UNK
     Route: 065
  81. MORPHINE SULFATE [Suspect]
     Active Substance: MORPHINE SULFATE
     Dosage: UNKNOWN
     Route: 065
  82. SODIUM BICARBONATE\SODIUM CHLORIDE [Suspect]
     Active Substance: SODIUM BICARBONATE\SODIUM CHLORIDE
     Dosage: UNK
     Route: 065
  83. SODIUM BICARBONATE\SODIUM CHLORIDE [Suspect]
     Active Substance: SODIUM BICARBONATE\SODIUM CHLORIDE
     Dosage: UNK
     Route: 050
  84. SODIUM BICARBONATE\SODIUM CHLORIDE [Suspect]
     Active Substance: SODIUM BICARBONATE\SODIUM CHLORIDE
     Dosage: UNK
     Route: 006
  85. SODIUM BICARBONATE\SODIUM CHLORIDE [Suspect]
     Active Substance: SODIUM BICARBONATE\SODIUM CHLORIDE
     Dosage: UNK
     Route: 065
  86. VITAMIN D3 [Suspect]
     Active Substance: CHOLECALCIFEROL
     Dosage: UNK
     Route: 065
  87. KENALOG [Suspect]
     Active Substance: TRIAMCINOLONE ACETONIDE
     Dosage: UNK
     Route: 014
  88. BETADERM [Suspect]
     Active Substance: BETAMETHASONE VALERATE
     Dosage: UNK
     Route: 065
  89. MINERALS\VITAMINS [Suspect]
     Active Substance: MINERALS\VITAMINS
     Dosage: UNK
     Route: 065
  90. SIMVASTATIN [Suspect]
     Active Substance: SIMVASTATIN
     Dosage: UNK
     Route: 065
  91. ACETAMINOPHEN [Suspect]
     Active Substance: ACETAMINOPHEN
     Dosage: UNK
     Route: 065
  92. LUTEIN\ZEAXANTHIN [Suspect]
     Active Substance: LUTEIN\ZEAXANTHIN
     Dosage: UNK
     Route: 065
  93. LUTEIN\ZEAXANTHIN [Suspect]
     Active Substance: LUTEIN\ZEAXANTHIN
     Dosage: UNK
     Route: 048
  94. ATORVASTATIN [Suspect]
     Active Substance: ATORVASTATIN
     Dosage: UNKNOWN
     Route: 065
  95. CETIRIZINE [Suspect]
     Active Substance: CETIRIZINE HYDROCHLORIDE
     Indication: Allergy prophylaxis
     Dosage: UNK
     Route: 065
  96. CETIRIZINE [Suspect]
     Active Substance: CETIRIZINE HYDROCHLORIDE
     Dosage: UNK
  97. POLYETHYLENE GLYCOLS [Suspect]
     Active Substance: POLYETHYLENE GLYCOLS
     Dosage: UNK
     Route: 066
  98. POLYETHYLENE GLYCOLS [Suspect]
     Active Substance: POLYETHYLENE GLYCOLS
     Dosage: UNK
     Route: 066
  99. AZITHROMYCIN ANHYDROUS [Suspect]
     Active Substance: AZITHROMYCIN ANHYDROUS
     Dosage: UNK
     Route: 065
  100. NICOMORPHINE [Suspect]
     Active Substance: NICOMORPHINE
     Dosage: UNK
     Route: 065
  101. HERBALS [Suspect]
     Active Substance: HERBALS
     Dosage: UNK
     Route: 065
  102. BROMHEXINE\CLORPRENALINE\SULFAMETHOXAZOLE\TRIMETHOPRIM [Suspect]
     Active Substance: BROMHEXINE\CLORPRENALINE\SULFAMETHOXAZOLE\TRIMETHOPRIM
     Dosage: UNK
     Route: 065
  103. CHOLECALCIFEROL [Suspect]
     Active Substance: CHOLECALCIFEROL
     Dosage: UNK
     Route: 065
  104. PSEUDOEPHEDRINE [Suspect]
     Active Substance: PSEUDOEPHEDRINE
     Dosage: UNK
     Route: 065
  105. SODIUM CHLORIDE [Suspect]
     Active Substance: SODIUM CHLORIDE
     Dosage: UNK
     Route: 045
  106. SODIUM CHLORIDE [Suspect]
     Active Substance: SODIUM CHLORIDE
     Dosage: UNK
     Route: 006
  107. POTASSIUM CHLORIDE [Suspect]
     Active Substance: POTASSIUM CHLORIDE
     Dosage: UNK
     Route: 065
  108. POLYMYXIN B SULFATE [Suspect]
     Active Substance: POLYMYXIN B SULFATE
     Dosage: UNK
     Route: 065
  109. POLYMYXIN B SULFATE [Suspect]
     Active Substance: POLYMYXIN B SULFATE
     Dosage: UNK
     Route: 047
  110. POLYMYXIN B SULFATE [Suspect]
     Active Substance: POLYMYXIN B SULFATE
     Dosage: UNK
     Route: 065
  111. ASPIRIN\CITRIC ACID MONOHYDRATE\SODIUM BICARBONATE [Suspect]
     Active Substance: ASPIRIN\CITRIC ACID MONOHYDRATE\SODIUM BICARBONATE
     Dosage: UNK
     Route: 065
  112. CARBOXYMETHYLCELLULOSE SODIUM [Suspect]
     Active Substance: CARBOXYMETHYLCELLULOSE SODIUM
     Dosage: UNK
     Route: 065
  113. CARBOXYMETHYLCELLULOSE SODIUM [Suspect]
     Active Substance: CARBOXYMETHYLCELLULOSE SODIUM
     Dosage: UNK
     Route: 047
  114. BETAMETHASONE\MUPIROCIN [Suspect]
     Active Substance: BETAMETHASONE\MUPIROCIN
     Dosage: UNK
     Route: 061
  115. DEXPANTHENOL [Suspect]
     Active Substance: DEXPANTHENOL
     Dosage: UNK
     Route: 065
  116. .ALPHA.-TOCOPHEROL ACETATE, DL- [Suspect]
     Active Substance: .ALPHA.-TOCOPHEROL ACETATE, DL-
     Dosage: UNK
     Route: 065
  117. DULCOLAX (BISACODYL) [Suspect]
     Active Substance: BISACODYL
     Dosage: UNK
     Route: 065
  118. SULFATRIM [Suspect]
     Active Substance: SULFAMETHOXAZOLE\TRIMETHOPRIM
     Dosage: UNK
     Route: 065
  119. HYDROCHLOROTHIAZIDE [Suspect]
     Active Substance: HYDROCHLOROTHIAZIDE
     Dosage: 100 MG
     Route: 005
  120. HYDROCHLOROTHIAZIDE [Suspect]
     Active Substance: HYDROCHLOROTHIAZIDE
     Dosage: UNK
     Route: 065
  121. HYDROCHLOROTHIAZIDE [Suspect]
     Active Substance: HYDROCHLOROTHIAZIDE
     Dosage: UNK
     Route: 005
  122. SALIX ALBA (WILLOW) BARK EXTRACT [Suspect]
     Active Substance: SALIX ALBA (WILLOW) BARK EXTRACT
     Dosage: SOLUTION (EXCEPT SYRUP)
     Route: 030
  123. DIMETHYL SULFOXIDE [Suspect]
     Active Substance: DIMETHYL SULFOXIDE
     Dosage: UNK
     Route: 065
  124. CALTRATE WITH VITAMIN D [Suspect]
     Active Substance: CALCIUM CARBONATE\CHOLECALCIFEROL
     Dosage: UNK
     Route: 065
  125. TRIAMCINOLONE ACETONIDE [Suspect]
     Active Substance: TRIAMCINOLONE ACETONIDE
     Dosage: UNK, SUSPENSION FOR INFUSION
     Route: 014
  126. TRIAMCINOLONE ACETONIDE [Suspect]
     Active Substance: TRIAMCINOLONE ACETONIDE
     Dosage: UNK
     Route: 031
  127. TRIAMCINOLONE ACETONIDE [Suspect]
     Active Substance: TRIAMCINOLONE ACETONIDE
     Dosage: UNK
     Route: 065
  128. ZEAXANTHIN [Suspect]
     Active Substance: ZEAXANTHIN
     Dosage: UNK
     Route: 065
  129. TOCOPHEROL [Suspect]
     Active Substance: TOCOPHEROL
     Dosage: UNK
     Route: 065
  130. METRONIDAZOLE BENZOATE [Suspect]
     Active Substance: METRONIDAZOLE BENZOATE
     Dosage: UNK
  131. ZOPICLONE [Suspect]
     Active Substance: ZOPICLONE
     Dosage: UNK
  132. SUCRALFATE [Suspect]
     Active Substance: SUCRALFATE
     Dosage: UNK
  133. CORTENEMA [Suspect]
     Active Substance: HYDROCORTISONE
     Dosage: UNK
  134. FENTANYL CITRATE [Suspect]
     Active Substance: FENTANYL CITRATE
     Dosage: UNK
     Route: 042
  135. CIPROFLOXACIN HYDROCHLORIDE [Suspect]
     Active Substance: CIPROFLOXACIN HYDROCHLORIDE
     Dosage: UNK
     Route: 042
  136. ENTYVIO [Suspect]
     Active Substance: VEDOLIZUMAB
     Dosage: 200 MG, 3X/DAY
     Route: 042
  137. ENTYVIO [Suspect]
     Active Substance: VEDOLIZUMAB
     Dosage: UNK
     Route: 065
  138. VERSED [Suspect]
     Active Substance: MIDAZOLAM HYDROCHLORIDE
     Dosage: 2 DF
  139. DITROPAN [Suspect]
     Active Substance: OXYBUTYNIN CHLORIDE
     Dosage: UNK
  140. INFLIXIMAB [Suspect]
     Active Substance: INFLIXIMAB
     Indication: Crohn^s disease
     Dosage: UNK
     Route: 042
  141. REMICADE [Suspect]
     Active Substance: INFLIXIMAB
     Dosage: UNK
     Route: 065
  142. AMOXICILLIN [Suspect]
     Active Substance: AMOXICILLIN
     Dosage: UNK
     Route: 065
  143. ISONIAZID [Suspect]
     Active Substance: ISONIAZID
     Dosage: UNK
     Route: 065
  144. AMBROXOL HYDROCHLORIDE [Suspect]
     Active Substance: AMBROXOL HYDROCHLORIDE
     Dosage: UNK
     Route: 065
  145. CALCIUM CARBONATE\CHOLECALCIFEROL [Suspect]
     Active Substance: CALCIUM CARBONATE\CHOLECALCIFEROL
     Dosage: UNK
     Route: 065
  146. AZITHROMYCIN DIHYDRATE [Suspect]
     Active Substance: AZITHROMYCIN DIHYDRATE
     Dosage: UNK
     Route: 065
  147. AMBROXOL\CETIRIZINE HYDROCHLORIDE [Suspect]
     Active Substance: AMBROXOL\CETIRIZINE HYDROCHLORIDE
     Dosage: UNK
     Route: 065
  148. CALCITRIOL\CALCIUM CARBONATE\ZINC [Suspect]
     Active Substance: CALCITRIOL\CALCIUM CARBONATE\ZINC
     Dosage: UNK
     Route: 065
  149. CALCIUM CARBONATE\ERGOCALCIFEROL [Suspect]
     Active Substance: CALCIUM CARBONATE\ERGOCALCIFEROL
     Dosage: UNK
     Route: 065
  150. TRIMETHOPRIM [Suspect]
     Active Substance: TRIMETHOPRIM
     Dosage: UNK
     Route: 065
  151. POLYETHYLENE GLYCOL 4000 [Suspect]
     Active Substance: POLYETHYLENE GLYCOL 4000
     Dosage: UNK
     Route: 065
  152. POLYETHYLENE GLYCOL 4000 [Suspect]
     Active Substance: POLYETHYLENE GLYCOL 4000
     Dosage: UNK
     Route: 005
  153. POLYETHYLENE GLYCOL\POTASSIUM CHLORIDE\SODIUM BICARBONATE\SODIUM CHLOR [Suspect]
     Active Substance: POLYETHYLENE GLYCOL\POTASSIUM CHLORIDE\SODIUM BICARBONATE\SODIUM CHLORIDE
     Dosage: UNK
     Route: 065
  154. LOPERAMIDE HYDROCHLORIDE [Suspect]
     Active Substance: LOPERAMIDE HYDROCHLORIDE
     Dosage: UNK
     Route: 048
  155. LOPERAMIDE HYDROCHLORIDE [Suspect]
     Active Substance: LOPERAMIDE HYDROCHLORIDE
     Dosage: 1 DOSAGE FORM, Q6HR
     Route: 048
  156. LOPERAMIDE HYDROCHLORIDE [Suspect]
     Active Substance: LOPERAMIDE HYDROCHLORIDE
     Dosage: 1 DOSAGE FORM
     Route: 048
  157. LOPERAMIDE HYDROCHLORIDE [Suspect]
     Active Substance: LOPERAMIDE HYDROCHLORIDE
     Dosage: 4 DOSAGE FORM, QD
     Route: 048
  158. IMODIUM [Suspect]
     Active Substance: LOPERAMIDE HYDROCHLORIDE
     Dosage: UNK
     Route: 065
  159. MOVIPREP [Suspect]
     Active Substance: ASCORBIC ACID\POLYETHYLENE GLYCOL 3350\POTASSIUM CHLORIDE\SODIUM ASCORBATE\SODIUM CHLORIDE\SODIUM SU
     Dosage: UNK
     Route: 065
  160. CUPRIC OXIDE\FOLIC ACID\NIACIN\ZINC OXIDE [Suspect]
     Active Substance: CUPRIC OXIDE\FOLIC ACID\NIACIN\ZINC OXIDE
     Dosage: UNK
     Route: 065
  161. CALCIUM CARBONATE\CHOLECALCIFEROL [Suspect]
     Active Substance: CALCIUM CARBONATE\CHOLECALCIFEROL
     Dosage: UNK
     Route: 065
  162. DIPHENOXYLATE HYDROCHLORIDE [Suspect]
     Active Substance: DIPHENOXYLATE HYDROCHLORIDE
     Dosage: UNK
     Route: 065
  163. NICOTINAMIDE [Suspect]
     Active Substance: NIACINAMIDE
     Dosage: UNK
     Route: 065
  164. FRUCTOSE\GLYCERIN\SODIUM CHLORIDE [Suspect]
     Active Substance: FRUCTOSE\GLYCERIN\SODIUM CHLORIDE
     Dosage: UNK
     Route: 065
  165. FRUCTOSE\GLYCERIN\SODIUM CHLORIDE [Suspect]
     Active Substance: FRUCTOSE\GLYCERIN\SODIUM CHLORIDE
     Dosage: UNK
     Route: 048
  166. VEDOLIZUMAB [Suspect]
     Active Substance: VEDOLIZUMAB
     Dosage: 200 MILLIGRAM, TID
     Route: 065
  167. CALCIUM CITRATE [Suspect]
     Active Substance: CALCIUM CITRATE
     Dosage: UNK
     Route: 065
  168. ATROPINE SULFATE [Suspect]
     Active Substance: ATROPINE SULFATE
     Dosage: 1 DOSAGE FORM
     Route: 048
  169. ATROPINE SULFATE [Suspect]
     Active Substance: ATROPINE SULFATE
     Dosage: UNK
     Route: 048
  170. ATROPINE SULFATE [Suspect]
     Active Substance: ATROPINE SULFATE
     Dosage: 4 DOSAGE FORM
     Route: 048
  171. ATROPINE SULFATE [Suspect]
     Active Substance: ATROPINE SULFATE
     Dosage: UNK
     Route: 065
  172. MESALAMINE [Suspect]
     Active Substance: MESALAMINE
     Dosage: UNK
     Route: 065
  173. BENZYDAMINE HYDROCHLORIDE [Suspect]
     Active Substance: BENZYDAMINE HYDROCHLORIDE
     Dosage: UNK
     Route: 065
  174. PANTOPRAZOLE SODIUM ANHYDROUS [Suspect]
     Active Substance: PANTOPRAZOLE SODIUM ANHYDROUS
     Dosage: UNK
     Route: 065
  175. POLYETHYLENE GLYCOL\PROPYLENE GLYCOL\SODIUM CHLORIDE [Suspect]
     Active Substance: POLYETHYLENE GLYCOL\PROPYLENE GLYCOL\SODIUM CHLORIDE
     Dosage: UNK
     Route: 050
  176. UBIDECARENONE [Suspect]
     Active Substance: UBIDECARENONE
     Route: 065
  177. ACETAMINOPHEN [Suspect]
     Active Substance: ACETAMINOPHEN
     Route: 065
  178. VALSARTAN [Suspect]
     Active Substance: VALSARTAN
     Dosage: UNK
     Route: 065
  179. VALSARTAN [Suspect]
     Active Substance: VALSARTAN
     Dosage: 4 DOSAGE FORM, QD
     Route: 065
  180. VALSARTAN [Suspect]
     Active Substance: VALSARTAN
     Dosage: UNK
     Route: 067
  181. MICONAZOLE NITRATE\NEOMYCIN SULFATE\TRIAMCINOLONE ACETONIDE 21-ACETATE [Suspect]
     Active Substance: MICONAZOLE NITRATE\NEOMYCIN SULFATE\TRIAMCINOLONE ACETONIDE 21-ACETATE
     Dosage: UNK
  182. BISOPROLOL FUMARATE [Suspect]
     Active Substance: BISOPROLOL FUMARATE
     Dosage: 5 MILLIGRAM, QD
     Route: 065
  183. SODIUM STEARATE [Suspect]
     Active Substance: SODIUM STEARATE
     Dosage: UNK
     Route: 065
  184. CALCIUM CARBONATE\CALCIUM GLUCONATE [Suspect]
     Active Substance: CALCIUM CARBONATE\CALCIUM GLUCONATE
     Dosage: UNK
     Route: 065
  185. GLYCERIN [Suspect]
     Active Substance: GLYCERIN
     Dosage: UNK
     Route: 048
  186. CLARITHROMYCIN [Suspect]
     Active Substance: CLARITHROMYCIN
     Dosage: UNK
     Route: 065
  187. NICOTINE POLACRILEX [Suspect]
     Active Substance: NICOTINE
     Dosage: UNK
     Route: 065
  188. NICOTINE POLACRILEX [Suspect]
     Active Substance: NICOTINE
     Dosage: UNK
     Route: 065
  189. SULFAMETHOXAZOLE AND TRIMETHOPRIM [Suspect]
     Active Substance: SULFAMETHOXAZOLE\TRIMETHOPRIM
     Dosage: UNK
     Route: 065
  190. CHOLECALCIFEROL [Suspect]
     Active Substance: CHOLECALCIFEROL
     Route: 065
  191. FLUTICASONE PROPIONATE [Suspect]
     Active Substance: FLUTICASONE PROPIONATE
     Dosage: UNK
     Route: 065
  192. DESONIDE [Suspect]
     Active Substance: DESONIDE
     Dosage: UNK
     Route: 048
  193. MUPIROCIN [Suspect]
     Active Substance: MUPIROCIN
     Dosage: UNK
     Route: 061
  194. LOPERAMIDE HYDROCHLORIDE [Suspect]
     Active Substance: LOPERAMIDE HYDROCHLORIDE
     Dosage: UNK
     Route: 048
  195. PULMICORT TURBUHALER [Suspect]
     Active Substance: BUDESONIDE
     Dosage: UNK
     Route: 055
  196. ICHTHAMMOL\ZINC OXIDE [Suspect]
     Active Substance: ICHTHAMMOL\ZINC OXIDE
     Dosage: UNK
     Route: 065
  197. BETAMETHASONE DIPROPIONATE [Suspect]
     Active Substance: BETAMETHASONE DIPROPIONATE
     Dosage: UNK
     Route: 065
  198. CLOFIBRATE [Suspect]
     Active Substance: CLOFIBRATE
     Dosage: UNK
     Route: 065
  199. GRAMICIDIN\POLYMYXIN B [Suspect]
     Active Substance: GRAMICIDIN\POLYMYXIN B
     Dosage: UNK
     Route: 065
  200. NITROGLYCERIN [Suspect]
     Active Substance: NITROGLYCERIN
     Dosage: UNK
     Route: 065
  201. MOVIPREP [Suspect]
     Active Substance: ASCORBIC ACID\POLYETHYLENE GLYCOL 3350\POTASSIUM CHLORIDE\SODIUM ASCORBATE\SODIUM CHLORIDE\SODIUM SU
     Dosage: UNK
     Route: 065
  202. FLUTICASONE [Suspect]
     Active Substance: FLUTICASONE
     Dosage: UNK
     Route: 065
  203. NEOMYCIN SULFATE [Suspect]
     Active Substance: NEOMYCIN SULFATE
     Dosage: UNK
     Route: 065
  204. PYRIDOXINE [Suspect]
     Active Substance: PYRIDOXINE
     Dosage: UNK
     Route: 065
  205. ICHTHAMMOL\ZINC OXIDE [Suspect]
     Active Substance: ICHTHAMMOL\ZINC OXIDE
     Dosage: UNK
     Route: 065
  206. CALCIUM GLUCONATE COX [Concomitant]
     Dosage: UNK
  207. METOCLOPRAMIDE HYDROCHLORIDE [Concomitant]
     Active Substance: METOCLOPRAMIDE HYDROCHLORIDE
     Indication: Premedication
     Dosage: 10 MG, UNK
     Route: 048
  208. LOPERAMIDE [Concomitant]
     Active Substance: LOPERAMIDE
     Dosage: UNK
     Route: 048
  209. CALCIUM\ERGOCALCIFEROL [Concomitant]
     Active Substance: CALCIUM\ERGOCALCIFEROL
     Dosage: UNK
  210. METOCLOPRAMIDE HYDROCHLORIDE [Concomitant]
     Active Substance: METOCLOPRAMIDE HYDROCHLORIDE
     Dosage: UNK
     Route: 048
  211. POLYETHYLENE GLYCOLS [Concomitant]
     Active Substance: POLYETHYLENE GLYCOLS
     Dosage: UNK
     Route: 065
  212. MUPIROCIN CALCIUM [Concomitant]
     Active Substance: MUPIROCIN CALCIUM
     Dosage: UNK
  213. .ALPHA.-TOCOPHEROL ACETATE [Concomitant]
     Active Substance: .ALPHA.-TOCOPHEROL ACETATE
     Dosage: UNK
  214. TOCOPHEROL [Concomitant]
     Active Substance: TOCOPHEROL

REACTIONS (30)
  - Pyrexia [Unknown]
  - Weight decreased [Unknown]
  - Macular degeneration [Unknown]
  - Chronic sinusitis [Unknown]
  - Infusion related reaction [Unknown]
  - Paraesthesia oral [Unknown]
  - Nausea [Unknown]
  - Dyspepsia [Unknown]
  - Malaise [Unknown]
  - Procedural pain [Unknown]
  - Pain [Unknown]
  - Anaemia [Not Recovered/Not Resolved]
  - Colitis [Not Recovered/Not Resolved]
  - Colitis ulcerative [Not Recovered/Not Resolved]
  - Constipation [Not Recovered/Not Resolved]
  - Erythema [Not Recovered/Not Resolved]
  - Female genital tract fistula [Not Recovered/Not Resolved]
  - Frequent bowel movements [Not Recovered/Not Resolved]
  - Haematochezia [Not Recovered/Not Resolved]
  - Headache [Not Recovered/Not Resolved]
  - Oral candidiasis [Not Recovered/Not Resolved]
  - Proctitis [Not Recovered/Not Resolved]
  - Radiculopathy [Not Recovered/Not Resolved]
  - Rectal haemorrhage [Not Recovered/Not Resolved]
  - Vaginal discharge [Not Recovered/Not Resolved]
  - Vaginal flatulence [Not Recovered/Not Resolved]
  - Abdominal pain [Not Recovered/Not Resolved]
  - Therapeutic product effect incomplete [Not Recovered/Not Resolved]
  - Off label use [Not Recovered/Not Resolved]
  - Drug ineffective [Not Recovered/Not Resolved]

NARRATIVE: CASE EVENT DATE: 20180101
